FAERS Safety Report 5310959-6 (Version None)
Quarter: 2007Q2

REPORT INFORMATION
  Report Type: 
  Country: None (occurrence: None)
  Receive Date: 20070430
  Receipt Date: 20070419
  Transmission Date: 20071010
  Serious: Yes (Other)
  Sender: FDA-Public Use
  Company Number: US-JNJFOC-20070402350

PATIENT
  Age: 48 Year
  Sex: Female
  Weight: 83.46 kg

DRUGS (3)
  1. EXTRA STRENGTH TYLENOL [Suspect]
  2. EXTRA STRENGTH TYLENOL [Suspect]
     Indication: HEADACHE
  3. NATURAL WEIGHT LOSS PRODUCT [Concomitant]

REACTIONS (2)
  - MEDICATION TAMPERING [None]
  - SEDATION [None]
